FAERS Safety Report 25711777 (Version 3)
Quarter: 2025Q4

REPORT INFORMATION
  Report Type: Spontaneous
  Country: EU (occurrence: EU)
  Receive Date: 20250821
  Receipt Date: 20251029
  Transmission Date: 20260117
  Serious: Yes (Other)
  Sender: TAKEDA
  Company Number: EU-TAKEDA-2025TUS072208

PATIENT
  Age: 81 Year
  Sex: Male
  Weight: 68 kg

DRUGS (16)
  1. HYQVIA [Suspect]
     Active Substance: HUMAN IMMUNOGLOBULIN G\HYALURONIDASE (HUMAN RECOMBINANT)
     Indication: Immunodeficiency
     Dosage: 5 GRAM, 1/WEEK
     Dates: start: 20250624, end: 20250624
  2. ELRANATAMAB [Suspect]
     Active Substance: ELRANATAMAB
     Indication: Plasma cell myeloma
     Dosage: 12 MILLIGRAM, 1/WEEK
     Dates: start: 20250620, end: 20250620
  3. ELRANATAMAB [Suspect]
     Active Substance: ELRANATAMAB
     Dosage: 32 MILLIGRAM, 1/WEEK
     Dates: start: 20250623, end: 20250623
  4. ELRANATAMAB [Suspect]
     Active Substance: ELRANATAMAB
     Dosage: 12 MILLIGRAM, QD
  5. ELRANATAMAB [Suspect]
     Active Substance: ELRANATAMAB
     Dosage: 32 MILLIGRAM, QD
  6. ELRANATAMAB [Suspect]
     Active Substance: ELRANATAMAB
     Dosage: 76 MILLIGRAM
  7. JANUVIA [Concomitant]
     Active Substance: SITAGLIPTIN PHOSPHATE
  8. ASPIRIN [Concomitant]
     Active Substance: ASPIRIN
  9. CELECTOL [Concomitant]
     Active Substance: CELIPROLOL HYDROCHLORIDE
  10. IRBESARTAN [Concomitant]
     Active Substance: IRBESARTAN
  11. ROSUVASTATIN [Concomitant]
     Active Substance: ROSUVASTATIN
  12. HERBALS\SAW PALMETTO [Concomitant]
     Active Substance: HERBALS\SAW PALMETTO
  13. SILODOSIN [Concomitant]
     Active Substance: SILODOSIN
  14. BACTRIM [Concomitant]
     Active Substance: SULFAMETHOXAZOLE\TRIMETHOPRIM
  15. VALACYCLOVIR HYDROCHLORIDE [Concomitant]
     Active Substance: VALACYCLOVIR HYDROCHLORIDE
  16. LEUCOVORIN CALCIUM [Concomitant]
     Active Substance: LEUCOVORIN CALCIUM

REACTIONS (1)
  - Iridocyclitis [Recovered/Resolved]

NARRATIVE: CASE EVENT DATE: 20250627
